FAERS Safety Report 8802038 (Version 2)
Quarter: 2015Q1

REPORT INFORMATION
  Report Type: Report from Study
  Country: US (occurrence: US)
  Receive Date: 20120921
  Receipt Date: 20150306
  Transmission Date: 20150721
  Serious: Yes (Death, Hospitalization)
  Sender: FDA-Public Use
  Company Number: US-ROCHE-1103527

PATIENT
  Age: 35 Year
  Sex: Female

DRUGS (25)
  1. AVASTIN [Suspect]
     Active Substance: BEVACIZUMAB
     Route: 042
     Dates: start: 20070402
  2. VICODIN [Concomitant]
     Active Substance: ACETAMINOPHEN\HYDROCODONE BITARTRATE
     Indication: PAIN
     Dosage: 5-500MG 1-2 TAB EVERY 4-6 HOUR AS NEEDED
     Route: 048
  3. DEXAMETHASONE. [Concomitant]
     Active Substance: DEXAMETHASONE
     Route: 042
     Dates: start: 20070219
  4. OXYCODONE HYDROCHLORIDE. [Concomitant]
     Active Substance: OXYCODONE HYDROCHLORIDE
     Indication: PAIN
  5. ZOFRAN [Concomitant]
     Active Substance: ONDANSETRON HYDROCHLORIDE
     Route: 042
  6. AVASTIN [Suspect]
     Active Substance: BEVACIZUMAB
     Indication: BRAIN NEOPLASM MALIGNANT
     Route: 042
     Dates: start: 20070219
  7. CAMPTOSAR [Concomitant]
     Active Substance: IRINOTECAN HYDROCHLORIDE
     Route: 042
     Dates: start: 20070402
  8. DILANTIN [Concomitant]
     Active Substance: PHENYTOIN
     Route: 048
  9. LOPERAMIDE [Concomitant]
     Active Substance: LOPERAMIDE
     Dosage: EVERY 2HRS DURING DAY AND EVERY 4HRS DURING NIGHT
     Route: 048
  10. OXYCODONE HYDROCHLORIDE. [Concomitant]
     Active Substance: OXYCODONE HYDROCHLORIDE
     Indication: HEADACHE
     Dosage: 1-3TAB EVERY 4 HOURS AS REQUIRED
     Route: 048
  11. AVELOX (UNITED STATES) [Concomitant]
  12. KEPPRA [Concomitant]
     Active Substance: LEVETIRACETAM
     Dosage: EVERY MORNING
     Route: 048
  13. SINGULAIR [Concomitant]
     Active Substance: MONTELUKAST SODIUM
     Route: 048
  14. NASONEX [Concomitant]
     Active Substance: MOMETASONE FUROATE
     Route: 045
  15. LOPERAMIDE [Concomitant]
     Active Substance: LOPERAMIDE
     Dosage: AT 1ST SIGN OF DIARRHOEA
     Route: 048
  16. MORPHINE [Concomitant]
     Active Substance: MORPHINE
     Indication: HEADACHE
     Route: 065
  17. PROCHLORPERAZINE. [Concomitant]
     Active Substance: PROCHLORPERAZINE
     Indication: VOMITING
  18. KEPPRA [Concomitant]
     Active Substance: LEVETIRACETAM
     Dosage: EVERY EVENING
     Route: 048
  19. PALONOSETRON [Concomitant]
     Active Substance: PALONOSETRON
     Route: 042
  20. DIPHENHYDRAMINE [Concomitant]
     Active Substance: DIPHENHYDRAMINE
     Route: 042
  21. MORPHINE [Concomitant]
     Active Substance: MORPHINE
     Route: 042
  22. PROCHLORPERAZINE. [Concomitant]
     Active Substance: PROCHLORPERAZINE
     Indication: NAUSEA
  23. CAMPTOSAR [Concomitant]
     Active Substance: IRINOTECAN HYDROCHLORIDE
     Route: 042
     Dates: start: 20070219
  24. DECADRON [Concomitant]
     Active Substance: DEXAMETHASONE
     Route: 048
  25. DEXAMETHASONE. [Concomitant]
     Active Substance: DEXAMETHASONE
     Route: 042

REACTIONS (23)
  - Nausea [Recovered/Resolved]
  - Dizziness [Recovered/Resolved]
  - Hypoaesthesia [Unknown]
  - Tinnitus [Recovered/Resolved]
  - Speech disorder [Unknown]
  - Insomnia [Unknown]
  - Off label use [Unknown]
  - Tremor [Unknown]
  - Motor dysfunction [Unknown]
  - Neurological decompensation [Unknown]
  - Constipation [Unknown]
  - Brain neoplasm [Unknown]
  - Brain herniation [Unknown]
  - Visual impairment [Recovered/Resolved]
  - Hypokalaemia [Unknown]
  - Death [Fatal]
  - Gait disturbance [Unknown]
  - Muscle spasms [Recovered/Resolved]
  - Dysphonia [Unknown]
  - Partial seizures [Recovered/Resolved]
  - Muscle twitching [Unknown]
  - Confusional state [Recovered/Resolved]
  - Oropharyngeal pain [Unknown]

NARRATIVE: CASE EVENT DATE: 20070219
